FAERS Safety Report 22142112 (Version 1)
Quarter: 2023Q1

REPORT INFORMATION
  Report Type: Spontaneous
  Country: FR (occurrence: FR)
  Receive Date: 20230327
  Receipt Date: 20230327
  Transmission Date: 20230418
  Serious: Yes (Hospitalization)
  Sender: FDA-Public Use
  Company Number: None

PATIENT
  Age: 81 Year
  Sex: Female
  Weight: 65 kg

DRUGS (6)
  1. MIRTAZAPINE [Suspect]
     Active Substance: MIRTAZAPINE
     Indication: Sleep disorder therapy
     Dosage: 30 MILLIGRAM DAILY; 15MG*2/DAY
     Route: 065
     Dates: start: 201910, end: 20191127
  2. MELATONIN [Suspect]
     Active Substance: MELATONIN
     Indication: Sleep disorder therapy
     Dosage: 4 MILLIGRAM DAILY; 2MG*2/DAY
     Route: 065
     Dates: start: 201910, end: 20191127
  3. DOLIPRANE [Concomitant]
     Active Substance: ACETAMINOPHEN
     Indication: Product used for unknown indication
     Dosage: 3 GRAM DAILY; 2 CAPSULES*3/DAY
     Route: 065
  4. OXAZEPAM [Concomitant]
     Active Substance: OXAZEPAM
     Indication: Product used for unknown indication
     Dosage: 10 MILLIGRAM DAILY; 5 MG*2/DAY
     Route: 065
  5. TRANSIPEG [Concomitant]
     Indication: Product used for unknown indication
     Dosage: IN SACHET
     Route: 065
  6. PHLOROGLUCINOL TRIMETHYL ETHER [Concomitant]
     Indication: Product used for unknown indication
     Dosage: 480 MILLIGRAM DAILY; 2 TABLETS AT 80MG*3/DAY
     Route: 065

REACTIONS (1)
  - Hepatic cytolysis [Recovered/Resolved]

NARRATIVE: CASE EVENT DATE: 20191127
